FAERS Safety Report 25988760 (Version 1)
Quarter: 2025Q4

REPORT INFORMATION
  Report Type: Spontaneous
  Country: EU (occurrence: EU)
  Receive Date: 20251103
  Receipt Date: 20251103
  Transmission Date: 20260118
  Serious: Yes (Life-Threatening, Hospitalization, Other)
  Sender: CHEPLAPHARM
  Company Number: None

PATIENT
  Age: 64 Year
  Sex: Male
  Weight: 55 kg

DRUGS (20)
  1. PREDNISONE [Interacting]
     Active Substance: PREDNISONE
     Indication: Renal transplant
     Dosage: DAILY DOSE: 10 MILLIGRAM
     Route: 048
     Dates: start: 202412, end: 20250131
  2. PREDNISONE [Interacting]
     Active Substance: PREDNISONE
     Indication: Immunosuppressant drug therapy
     Dosage: DAILY DOSE: 10 MILLIGRAM
     Route: 048
     Dates: start: 202412, end: 20250131
  3. PREDNISONE [Interacting]
     Active Substance: PREDNISONE
     Indication: Renal transplant
     Dosage: IMMUNOSUPPRESSIVE TREATMENT WAS RESTARTED ON 3/2/2025.?DAILY DOSE: 10 MILLIGRAM
     Route: 048
     Dates: start: 20250203
  4. PREDNISONE [Interacting]
     Active Substance: PREDNISONE
     Indication: Immunosuppressant drug therapy
     Dosage: IMMUNOSUPPRESSIVE TREATMENT WAS RESTARTED ON 3/2/2025.?DAILY DOSE: 10 MILLIGRAM
     Route: 048
     Dates: start: 20250203
  5. PREDNISONE [Interacting]
     Active Substance: PREDNISONE
     Indication: Renal transplant
     Dosage: DAILY DOSE: 5 MILLIGRAM
     Route: 048
     Dates: start: 20250221
  6. PREDNISONE [Interacting]
     Active Substance: PREDNISONE
     Indication: Immunosuppressant drug therapy
     Dosage: DAILY DOSE: 5 MILLIGRAM
     Route: 048
     Dates: start: 20250221
  7. VALGANCICLOVIR [Suspect]
     Active Substance: VALGANCICLOVIR
     Indication: Cytomegalovirus infection
     Dosage: DAILY DOSE: 900 MILLIGRAM
  8. MYFORTIC [Interacting]
     Active Substance: MYCOPHENOLATE SODIUM
     Indication: Immunosuppressant drug therapy
     Dosage: 50 TABLETS??DAILY DOSE: 720 MILLIGRAM
     Route: 048
     Dates: start: 202412, end: 20250131
  9. MYFORTIC [Interacting]
     Active Substance: MYCOPHENOLATE SODIUM
     Indication: Renal transplant
     Dosage: 50 TABLETS??DAILY DOSE: 720 MILLIGRAM
     Route: 048
     Dates: start: 202412, end: 20250131
  10. MYFORTIC [Interacting]
     Active Substance: MYCOPHENOLATE SODIUM
     Indication: Immunosuppressant drug therapy
     Dosage: REDUCED?DAILY DOSE: 720 MILLIGRAM
     Route: 048
     Dates: start: 20250112, end: 20250123
  11. MYFORTIC [Interacting]
     Active Substance: MYCOPHENOLATE SODIUM
     Indication: Renal transplant
     Dosage: REDUCED?DAILY DOSE: 720 MILLIGRAM
     Route: 048
     Dates: start: 20250112, end: 20250123
  12. MYFORTIC [Interacting]
     Active Substance: MYCOPHENOLATE SODIUM
     Indication: Immunosuppressant drug therapy
     Dosage: REDUCED?DAILY DOSE: 360 MILLIGRAM
     Route: 048
     Dates: start: 20250221
  13. MYFORTIC [Interacting]
     Active Substance: MYCOPHENOLATE SODIUM
     Indication: Renal transplant
     Dosage: REDUCED?DAILY DOSE: 360 MILLIGRAM
     Route: 048
     Dates: start: 20250221
  14. MYFORTIC [Interacting]
     Active Substance: MYCOPHENOLATE SODIUM
     Indication: Immunosuppressant drug therapy
     Dosage: DAILY DOSE: 24 MILLIGRAM
     Route: 048
  15. MYFORTIC [Interacting]
     Active Substance: MYCOPHENOLATE SODIUM
     Indication: Renal transplant
     Dosage: DAILY DOSE: 24 MILLIGRAM
     Route: 048
  16. MYFORTIC [Interacting]
     Active Substance: MYCOPHENOLATE SODIUM
     Indication: Immunosuppressant drug therapy
     Dosage: DAILY DOSE: 1080 MILLIGRAM
     Route: 048
  17. MYFORTIC [Interacting]
     Active Substance: MYCOPHENOLATE SODIUM
     Indication: Renal transplant
     Dosage: DAILY DOSE: 1080 MILLIGRAM
     Route: 048
  18. ENVARSUS XR [Interacting]
     Active Substance: TACROLIMUS
     Indication: Renal transplant
     Dosage: 30 TABLETS?DAILY DOSE: 6 MILLIGRAM
     Route: 048
     Dates: start: 202412, end: 20250131
  19. ENVARSUS XR [Interacting]
     Active Substance: TACROLIMUS
     Indication: Immunosuppressant drug therapy
     Dosage: 30 TABLETS?DAILY DOSE: 6 MILLIGRAM
     Route: 048
     Dates: start: 202412, end: 20250131
  20. CIMZIA [Interacting]
     Active Substance: CERTOLIZUMAB PEGOL
     Indication: Ankylosing spondylitis
     Dosage: 2 PREFILLED SYRINGES OF 1 ML
     Route: 058
     Dates: start: 2025

REACTIONS (7)
  - Klebsiella sepsis [Recovered/Resolved]
  - Septic shock [Recovered/Resolved]
  - Pyelonephritis acute [Unknown]
  - Renal impairment [Unknown]
  - Klebsiella infection [Unknown]
  - Escherichia infection [Unknown]
  - Off label use [Unknown]

NARRATIVE: CASE EVENT DATE: 20250101
